FAERS Safety Report 8762792 (Version 1)
Quarter: 2012Q4

REPORT INFORMATION
  Report Type: 
  Country: TR (occurrence: TR)
  Receive Date: 20120830
  Receipt Date: 20120830
  Transmission Date: 20130627
  Serious: Yes (Other)
  Sender: FDA-Public Use
  Company Number: TR-US-EMD SERONO, INC.-7127277

PATIENT
  Sex: Female
  Weight: 71 kg

DRUGS (1)
  1. REBIF [Suspect]
     Indication: MULTIPLE SCLEROSIS
     Route: 058
     Dates: start: 20110501, end: 20120413

REACTIONS (1)
  - Lymphoma [Not Recovered/Not Resolved]
